FAERS Safety Report 26117059 (Version 2)
Quarter: 2025Q4

REPORT INFORMATION
  Report Type: Spontaneous
  Country: CN (occurrence: CN)
  Receive Date: 20251203
  Receipt Date: 20251210
  Transmission Date: 20260117
  Serious: No
  Sender: MYLAN
  Company Number: CN-MYLANLABS-2025M1102418

PATIENT
  Age: 69 Year
  Sex: Male

DRUGS (2)
  1. ZOLOFT [Suspect]
     Active Substance: SERTRALINE HYDROCHLORIDE
     Indication: Product used for unknown indication
     Dosage: 2 DOSAGE FORM, QD
  2. ZOLOFT [Suspect]
     Active Substance: SERTRALINE HYDROCHLORIDE
     Dosage: UNK

REACTIONS (4)
  - Hypoacusis [Unknown]
  - Ear congestion [Unknown]
  - Eczema [Unknown]
  - Dizziness [Unknown]
